FAERS Safety Report 8228601-3 (Version None)
Quarter: 2012Q1

REPORT INFORMATION
  Report Type: 
  Country: None (occurrence: None)
  Receive Date: 20120322
  Receipt Date: 20110721
  Transmission Date: 20120608
  Serious: Yes (Hospitalization)
  Sender: FDA-Public Use
  Company Number: US-BRISTOL-MYERS SQUIBB COMPANY-15612617

PATIENT
  Sex: Male

DRUGS (1)
  1. ERBITUX [Suspect]
     Dosage: FIRST DOSE
     Route: 042
     Dates: start: 20090101

REACTIONS (3)
  - DIZZINESS [None]
  - MALAISE [None]
  - LOSS OF CONSCIOUSNESS [None]
